FAERS Safety Report 22382861 (Version 3)
Quarter: 2024Q3

REPORT INFORMATION
  Report Type: Spontaneous
  Country: HU (occurrence: HU)
  Receive Date: 20230530
  Receipt Date: 20240925
  Transmission Date: 20241017
  Serious: Yes (Life-Threatening, Hospitalization, Other)
  Sender: JUBILANT
  Company Number: None

PATIENT
  Age: 85 Year
  Sex: Female

DRUGS (5)
  1. AMLODIPINE AND OLMESARTAN MEDOXOMIL [Suspect]
     Active Substance: AMLODIPINE BESYLATE\OLMESARTAN MEDOXOMIL
     Dosage: UNK,UNK (FOR A LONG TIME)
  2. COUMARIN [Suspect]
     Active Substance: COUMARIN
     Indication: Product used for unknown indication
     Dosage: UNK,UNK (FOR A LONG TIME)
  3. PERINDOPRIL [Suspect]
     Active Substance: PERINDOPRIL
     Indication: Product used for unknown indication
     Dosage: UNK,UNK
  4. FUROSEMIDE [Suspect]
     Active Substance: FUROSEMIDE
     Indication: Product used for unknown indication
     Dosage: UNK,UNK (FOR A LONG TIME)
  5. POTASSIUM [Suspect]
     Active Substance: POTASSIUM
     Indication: Product used for unknown indication
     Dosage: UNK,UNK (FOR A LONG TIME)

REACTIONS (3)
  - Hyponatraemia [Recovered/Resolved]
  - Drug ineffective [Recovered/Resolved]
  - Renal impairment [Recovered/Resolved]
